FAERS Safety Report 5240283-1 (Version None)
Quarter: 2007Q1

REPORT INFORMATION
  Report Type: 
  Country: None (occurrence: None)
  Receive Date: 20070219
  Receipt Date: 20070213
  Transmission Date: 20070707
  Serious: Yes (Death, Hospitalization)
  Sender: FDA-Public Use
  Company Number: PHHO2007BR03107

PATIENT
  Age: 84 Year
  Sex: Female

DRUGS (4)
  1. FUROSEMIDE [Concomitant]
  2. ALDACTONE [Concomitant]
  3. HIGROTON [Concomitant]
  4. ZELMAC / HTF 919A [Suspect]
     Route: 048
     Dates: start: 20061101

REACTIONS (6)
  - ABDOMINAL PAIN [None]
  - DYSPNOEA [None]
  - NEOPLASM [None]
  - OEDEMA PERIPHERAL [None]
  - RENAL FAILURE CHRONIC [None]
  - URINARY RETENTION [None]
